FAERS Safety Report 13897429 (Version 1)
Quarter: 2017Q3

REPORT INFORMATION
  Report Type: Report from Study
  Country: MX (occurrence: MX)
  Receive Date: 20170823
  Receipt Date: 20170823
  Transmission Date: 20171127
  Serious: Yes (Other)
  Sender: FDA-Public Use
  Company Number: MX-JNJFOC-20170815996

PATIENT
  Age: 62 Year
  Sex: Female
  Weight: 68 kg

DRUGS (10)
  1. DEFLAZACORT [Concomitant]
     Active Substance: DEFLAZACORT
     Route: 065
  2. LEFLUNOMIDA [Concomitant]
     Active Substance: LEFLUNOMIDE
     Route: 065
  3. NIFEDIPINA [Concomitant]
     Active Substance: NIFEDIPINE
     Route: 065
  4. LOSARTAN. [Concomitant]
     Active Substance: LOSARTAN
     Indication: HYPERTENSION
     Route: 065
  5. REMICADE [Suspect]
     Active Substance: INFLIXIMAB
     Indication: RHEUMATOID ARTHRITIS
     Route: 042
  6. CELEBREX [Concomitant]
     Active Substance: CELECOXIB
     Route: 065
  7. METOPROLOL. [Concomitant]
     Active Substance: METOPROLOL
     Indication: HYPERTENSION
     Route: 065
  8. LORATADINE. [Concomitant]
     Active Substance: LORATADINE
     Indication: PREMEDICATION
     Route: 065
  9. REMICADE [Suspect]
     Active Substance: INFLIXIMAB
     Indication: RHEUMATOID ARTHRITIS
     Dosage: ONLY 10 MG WAS APPLIED
     Route: 042
     Dates: start: 20170816
  10. HYDROCORTISONE. [Concomitant]
     Active Substance: HYDROCORTISONE
     Indication: PREMEDICATION
     Route: 065

REACTIONS (4)
  - Hypertension [Unknown]
  - Infusion related reaction [Unknown]
  - Respiratory failure [Unknown]
  - Abdominal pain [Unknown]

NARRATIVE: CASE EVENT DATE: 20170816
